FAERS Safety Report 5000178-5 (Version None)
Quarter: 2006Q2

REPORT INFORMATION
  Report Type: 
  Country: None (occurrence: None)
  Receive Date: 20060509
  Receipt Date: 20050719
  Transmission Date: 20061013
  Serious: Yes (Other)
  Sender: FDA-Public Use
  Company Number: 2005103570

PATIENT
  Age: 70 Year
  Sex: Female
  Weight: 79 kg

DRUGS (7)
  1. LYRICA [Suspect]
     Indication: NEURALGIA
     Dosage: 300 MG (150 MG, 2 IN 1 D), ORAL
     Route: 048
     Dates: start: 20040101, end: 20050628
  2. LEVOZIN               (LEVOMEPROMAZINE MALEATE) [Concomitant]
  3. TRIPTYL              (AMITRIPTYLINE HYDROCHLORIDE) [Concomitant]
  4. ACETAMINOPHEN [Concomitant]
  5. DURAGESIC-100 [Concomitant]
  6. ESCOR                (NILVADIPINE) [Concomitant]
  7. FUROSEMIDE [Concomitant]

REACTIONS (2)
  - GRAND MAL CONVULSION [None]
  - LOSS OF CONSCIOUSNESS [None]
